FAERS Safety Report 9791193 (Version 2)
Quarter: 2013Q4

REPORT INFORMATION
  Report Type: Spontaneous
  Country: US (occurrence: US)
  Receive Date: 20131231
  Receipt Date: 20131231
  Transmission Date: 20140711
  Serious: Yes (Other)
  Sender: FDA-Public Use
  Company Number: US-GE HEALTHCARE MEDICAL DIAGNOSTICS-OSCN-PR-1008S-0235

PATIENT
  Sex: Male

DRUGS (32)
  1. OMNISCAN [Suspect]
     Indication: PRODUCT USED FOR UNKNOWN INDICATION
     Route: 042
     Dates: start: 20060330, end: 20060330
  2. OMNISCAN [Suspect]
     Dates: start: 20060512, end: 20060512
  3. OPTIMARK [Suspect]
     Indication: VISION BLURRED
     Dates: start: 20030703, end: 20030703
  4. OPTIMARK [Suspect]
     Indication: CONVULSION
     Dates: start: 20041229, end: 20041229
  5. OPTIMARK [Suspect]
     Indication: TEMPORAL ARTERITIS
  6. OPTIMARK [Suspect]
     Indication: TAKAYASU^S ARTERITIS
  7. GADOLINIUM (UNSPECIFIED) [Suspect]
     Indication: EYELID PTOSIS
     Dates: start: 19960906, end: 19960906
  8. GADOLINIUM (UNSPECIFIED) [Suspect]
     Indication: AMBLYOPIA
     Dates: start: 20030711, end: 20030711
  9. GADOLINIUM (UNSPECIFIED) [Suspect]
     Indication: DIPLOPIA
     Dates: start: 20030625, end: 20030625
  10. GADOLINIUM (UNSPECIFIED) [Suspect]
     Indication: AUTOIMMUNE DISORDER
  11. NEPHROCAPS [Concomitant]
  12. PHOSLO [Concomitant]
  13. EPOGEN [Concomitant]
  14. ERGOCALCIFEROL [Concomitant]
  15. ESOMEPRAZOLE [Concomitant]
  16. ACYCLOVIR [Concomitant]
  17. NPH INSULIN [Concomitant]
  18. METOPROLOL [Concomitant]
  19. PREDNISONE [Concomitant]
  20. IRON SUPPLEMENT [Concomitant]
  21. QUININE [Concomitant]
  22. MIDODRINE [Concomitant]
  23. FLUCONAZOLE [Concomitant]
  24. ENBREL [Concomitant]
  25. CARDURA [Concomitant]
  26. INDERAL [Concomitant]
  27. RYTHMOL [Concomitant]
  28. CARDIZEM [Concomitant]
  29. DIOVAN [Concomitant]
  30. HECTOROL [Concomitant]
  31. FOSRENOL [Concomitant]
  32. VENOFER [Concomitant]

REACTIONS (1)
  - Nephrogenic systemic fibrosis [Not Recovered/Not Resolved]
